FAERS Safety Report 6079544-5 (Version None)
Quarter: 2009Q1

REPORT INFORMATION
  Report Type: 
  Country: None (occurrence: None)
  Receive Date: 20090217
  Receipt Date: 20090206
  Transmission Date: 20090719
  Serious: Yes (Other)
  Sender: FDA-Public Use
  Company Number: PHHY2008JP25714

PATIENT
  Sex: Female

DRUGS (5)
  1. ZOMETA [Suspect]
     Indication: METASTASES TO BONE
     Dosage: 4 MG, UNK
     Route: 042
     Dates: start: 20060522, end: 20070416
  2. AREDIA [Suspect]
     Indication: METASTASES TO BONE
     Dosage: 45 MG, ONCE/SINGLE
     Route: 042
     Dates: start: 20060403
  3. ARIMIDEX [Concomitant]
     Dosage: 1 MG, UNK
     Dates: start: 20021028, end: 20070416
  4. NEUROTROPIN [Concomitant]
     Dosage: 2 DF, UNK
     Dates: start: 20060403, end: 20070319
  5. KLARICID [Concomitant]
     Dosage: 400 MG, UNK
     Route: 048
     Dates: start: 20080121, end: 20080203

REACTIONS (9)
  - BONE DISORDER [None]
  - GINGIVAL DISORDER [None]
  - GINGIVAL PAIN [None]
  - GINGIVAL SWELLING [None]
  - GINGIVAL ULCERATION [None]
  - ORAL CAVITY FISTULA [None]
  - OSTEOMYELITIS [None]
  - PURULENT DISCHARGE [None]
  - TOOTH EXTRACTION [None]
